FAERS Safety Report 16193263 (Version 2)
Quarter: 2020Q1

REPORT INFORMATION
  Report Type: Spontaneous
  Country: US (occurrence: US)
  Receive Date: 20190413
  Receipt Date: 20200225
  Transmission Date: 20200409
  Serious: Yes (Death, Hospitalization)
  Sender: FDA-Public Use
  Company Number: US-JNJFOC-20190400563

PATIENT
  Age: 77 Year
  Sex: Male

DRUGS (4)
  1. XARELTO [Suspect]
     Active Substance: RIVAROXABAN
     Indication: CEREBROVASCULAR ACCIDENT PROPHYLAXIS
  2. ASPRIN [Suspect]
     Active Substance: ASPIRIN
     Indication: CEREBROVASCULAR ACCIDENT PROPHYLAXIS
  3. XARELTO [Suspect]
     Active Substance: RIVAROXABAN
     Indication: ATRIAL FIBRILLATION
     Route: 048
     Dates: start: 20170503, end: 20170506
  4. ASPRIN [Suspect]
     Active Substance: ASPIRIN
     Indication: ATRIAL FIBRILLATION
     Route: 065

REACTIONS (7)
  - Pneumonia aspiration [Fatal]
  - Upper gastrointestinal haemorrhage [Unknown]
  - Mouth haemorrhage [Unknown]
  - Respiratory failure [Fatal]
  - Brain injury [Fatal]
  - Epistaxis [Unknown]
  - Lactic acidosis [Fatal]

NARRATIVE: CASE EVENT DATE: 20170506
